FAERS Safety Report 6723843-8 (Version None)
Quarter: 2010Q2

REPORT INFORMATION
  Report Type: 
  Country: None (occurrence: None)
  Receive Date: 20100511
  Receipt Date: 20100426
  Transmission Date: 20101027
  Serious: Yes (Other)
  Sender: FDA-Public Use
  Company Number: 000389

PATIENT
  Sex: Male

DRUGS (10)
  1. LACOSAMIDE [Suspect]
     Indication: EPILEPSY
     Dosage: (300 MG BID ORAL)
     Route: 048
     Dates: start: 20051129, end: 20080921
  2. DILANTIN [Concomitant]
  3. ZONEGRAN [Concomitant]
  4. LEVOXYL [Concomitant]
  5. FERROUS SULFATE TAB [Concomitant]
  6. ACTONEL [Concomitant]
  7. DEMEROL [Concomitant]
  8. PHENERGAN [Concomitant]
  9. FLEXERIL [Concomitant]
  10. MAGNESIUM CITRATE [Concomitant]

REACTIONS (3)
  - ATRIAL FIBRILLATION [None]
  - ATRIAL FLUTTER [None]
  - ATRIOVENTRICULAR BLOCK FIRST DEGREE [None]
